FAERS Safety Report 4906149-9 (Version None)
Quarter: 2006Q1

REPORT INFORMATION
  Report Type: 
  Country: None (occurrence: None)
  Receive Date: 20060207
  Receipt Date: 20060207
  Transmission Date: 20060701
  Serious: Yes (Hospitalization)
  Sender: FDA-Public Use
  Company Number: None

PATIENT
  Age: 45 Year
  Sex: Male
  Weight: 90.7194 kg

DRUGS (4)
  1. NAPROSYN [Suspect]
     Indication: BACK PAIN
     Dosage: 500 MG BID
     Dates: start: 20051012, end: 20051019
  2. COCAINE [Suspect]
     Indication: DRUG ABUSER
     Dosage: ILLICIT
  3. NAPROXEN [Concomitant]
  4. CYCLOBENZAPRINE HCL [Concomitant]

REACTIONS (1)
  - CHEST PAIN [None]
